FAERS Safety Report 13665325 (Version 6)
Quarter: 2017Q3

REPORT INFORMATION
  Report Type: Spontaneous
  Country: US (occurrence: US)
  Receive Date: 20170619
  Receipt Date: 20170918
  Transmission Date: 20171127
  Serious: No
  Sender: FDA-Public Use
  Company Number: US-SUNOVION-2017SUN002486

PATIENT

DRUGS (4)
  1. LATUDA [Suspect]
     Active Substance: LURASIDONE HYDROCHLORIDE
     Dosage: 80 MG, HS
     Route: 048
  2. GEODON [Concomitant]
     Active Substance: ZIPRASIDONE HYDROCHLORIDE\ZIPRASIDONE MESYLATE
  3. LATUDA [Suspect]
     Active Substance: LURASIDONE HYDROCHLORIDE
     Indication: BIPOLAR DISORDER
     Dosage: 40 MG, QD
     Route: 048
  4. LATUDA [Suspect]
     Active Substance: LURASIDONE HYDROCHLORIDE
     Dosage: UNK,BID
     Route: 048

REACTIONS (15)
  - Pain [Unknown]
  - Depression [Recovered/Resolved]
  - Hypersomnia [Unknown]
  - Back pain [Unknown]
  - Headache [Unknown]
  - Facial pain [Unknown]
  - Neck pain [Unknown]
  - Pain in jaw [Unknown]
  - Dizziness [Unknown]
  - Sedation [Unknown]
  - Fatigue [Unknown]
  - Postural orthostatic tachycardia syndrome [Unknown]
  - Pain in extremity [Unknown]
  - Musculoskeletal pain [Unknown]
  - Somnolence [Unknown]
